FAERS Safety Report 6038953-0 (Version None)
Quarter: 2009Q1

REPORT INFORMATION
  Report Type: 
  Country: None (occurrence: None)
  Receive Date: 20090115
  Receipt Date: 20090106
  Transmission Date: 20090719
  Serious: Yes (Other)
  Sender: FDA-Public Use
  Company Number: KR-BAXTER-2009BH000530

PATIENT
  Age: 49 Year
  Sex: Male

DRUGS (1)
  1. METRONIDAZOLE [Suspect]
     Indication: CROHN'S DISEASE

REACTIONS (1)
  - ENCEPHALOPATHY [None]
